FAERS Safety Report 4627460-5 (Version None)
Quarter: 2005Q1

REPORT INFORMATION
  Report Type: 
  Country: None (occurrence: None)
  Receive Date: 20050331
  Receipt Date: 20050322
  Transmission Date: 20050727
  Serious: Yes (Hospitalization)
  Sender: FDA-Public Use
  Company Number: 2005-126707-NL

PATIENT
  Age: 47 Year
  Sex: Male

DRUGS (8)
  1. DEXAMETHASONE [Suspect]
     Indication: ANALGESIC EFFECT
     Dosage: INTRAVENOUS (NOS)
     Route: 042
     Dates: start: 20050222, end: 20050222
  2. SEVOFLURANE [Suspect]
     Indication: ANAESTHESIA
     Dosage: RESPIRATORY (INHALATION)
     Route: 055
     Dates: start: 20050222, end: 20050222
  3. MORPHINE [Suspect]
     Indication: PAIN
     Dosage: INTRAVENOUS (NOS)
     Route: 042
     Dates: start: 20050222, end: 20050222
  4. FENTANYL [Suspect]
     Indication: ANALGESIC EFFECT
     Dosage: INTRAVENOUS (NOS)
     Route: 042
     Dates: start: 20050222, end: 20050222
  5. IBUPROFEN [Concomitant]
  6. LEVOBUPIVACAINE [Concomitant]
  7. ACETAMINOPHEN W/ CODEINE [Concomitant]
  8. PROCHLORPERAZINE [Concomitant]

REACTIONS (5)
  - INGUINAL HERNIA [None]
  - NAUSEA [None]
  - PAIN [None]
  - PROCEDURAL COMPLICATION [None]
  - SOMNOLENCE [None]
